FAERS Safety Report 12928947 (Version 2)
Quarter: 2017Q1

REPORT INFORMATION
  Report Type: Spontaneous
  Country: None (occurrence: HR)
  Receive Date: 20161110
  Receipt Date: 20170110
  Transmission Date: 20170428
  Serious: Yes (Life-Threatening, Hospitalization)
  Sender: FDA-Public Use
  Company Number: HR-MERCK KGAA-1059410

PATIENT

DRUGS (1)
  1. NOVOTHYROX [Suspect]
     Active Substance: LEVOTHYROXINE SODIUM

REACTIONS (7)
  - Ultrasound abdomen abnormal [None]
  - Small intestinal perforation [None]
  - Abdominal pain [None]
  - Peritonitis [None]
  - C-reactive protein increased [None]
  - Appendicectomy [None]
  - Oophorectomy bilateral [None]
